FAERS Safety Report 5691393-6 (Version None)
Quarter: 2008Q2

REPORT INFORMATION
  Report Type: 
  Country: None (occurrence: None)
  Receive Date: 20080402
  Receipt Date: 20080326
  Transmission Date: 20081010
  Serious: Yes (Hospitalization)
  Sender: FDA-Public Use
  Company Number: FR-BAYER-200815721GPV

PATIENT
  Age: 88 Year
  Sex: Female

DRUGS (1)
  1. ADALAT [Suspect]
     Indication: HYPERTENSION
     Route: 048

REACTIONS (4)
  - ABDOMINAL DISTENSION [None]
  - BEZOAR [None]
  - FAECAL VOMITING [None]
  - INTESTINAL OBSTRUCTION [None]
